FAERS Safety Report 4809726-9 (Version None)
Quarter: 2005Q4

REPORT INFORMATION
  Report Type: 
  Country: None (occurrence: None)
  Receive Date: 20051024
  Receipt Date: 20041202
  Transmission Date: 20060501
  Serious: Yes (Death, Life-Threatening, Hospitalization, Disabling)
  Sender: FDA-Public Use
  Company Number: HQ2006723APR2002

PATIENT
  Age: 63 Year
  Sex: Male
  Weight: 107 kg

DRUGS (13)
  1. MYLOTARG [Suspect]
     Indication: ACUTE MYELOID LEUKAEMIA
     Route: 042
     Dates: start: 19960306, end: 19960306
  2. MYLOTARG [Suspect]
     Indication: ACUTE MYELOID LEUKAEMIA
     Route: 042
     Dates: start: 19940328, end: 19960328
  3. MYLOTARG [Suspect]
     Indication: ACUTE MYELOID LEUKAEMIA
     Route: 042
     Dates: start: 19970409, end: 19970409
  4. MYLOTARG [Suspect]
     Indication: ACUTE MYELOID LEUKAEMIA
     Route: 042
     Dates: start: 20020417, end: 20020417
  5. ALLOPURINOL [Concomitant]
  6. MULTIVIT (VITAMINS NOS) [Concomitant]
  7. FLUCONAZOLE [Concomitant]
  8. ACYCLOVIR [Concomitant]
  9. IMIPENEM (IMIPENEM) [Concomitant]
  10. FLAGYL [Concomitant]
  11. K-DUR 10 [Concomitant]
  12. LACTAID (TILACTASE) [Concomitant]
  13. ATARAX [Concomitant]

REACTIONS (21)
  - ANOREXIA [None]
  - BLOOD BILIRUBIN INCREASED [None]
  - CHEST X-RAY ABNORMAL [None]
  - CHILLS [None]
  - DELIRIUM [None]
  - DEPRESSION [None]
  - DIARRHOEA [None]
  - DISEASE PROGRESSION [None]
  - FEBRILE NEUTROPENIA [None]
  - GRAFT VERSUS HOST DISEASE [None]
  - HAEMOGLOBIN DECREASED [None]
  - HERPES VIRUS INFECTION [None]
  - HYPERGLYCAEMIA [None]
  - HYPOTENSION [None]
  - LIVER FUNCTION TEST ABNORMAL [None]
  - MENTAL STATUS CHANGES [None]
  - NAUSEA [None]
  - SKIN LESION [None]
  - STAPHYLOCOCCAL BACTERAEMIA [None]
  - TACHYPNOEA [None]
  - VOMITING [None]
